FAERS Safety Report 13093771 (Version 1)
Quarter: 2017Q1

REPORT INFORMATION
  Report Type: Spontaneous
  Country: BR (occurrence: BR)
  Receive Date: 20170106
  Receipt Date: 20170106
  Transmission Date: 20170428
  Serious: Yes (Hospitalization)
  Sender: FDA-Public Use
  Company Number: BR-DSJP-DSU-2017-100292

PATIENT

DRUGS (4)
  1. ALENIA                             /01479302/ [Concomitant]
     Indication: EMBOLISM
     Dosage: INHALE AT NIGHT, QD
     Route: 045
     Dates: start: 2016
  2. OLMETEC HCT 20/12.5 [Suspect]
     Active Substance: HYDROCHLOROTHIAZIDE\OLMESARTAN MEDOXOMIL
     Indication: BLOOD PRESSURE ABNORMAL
     Dosage: 20/12.5 MG, QD
     Route: 048
     Dates: start: 2012
  3. ARTRODAR [Concomitant]
     Active Substance: DIACEREIN
     Indication: JOINT INJURY
     Dosage: 1 TABLET, QD
     Route: 048
     Dates: start: 201612
  4. CEDRIN [Concomitant]
     Indication: EMBOLISM
     Dosage: INHALE IN THE MORNING, QD
     Route: 045
     Dates: start: 2016

REACTIONS (2)
  - Thrombosis [Unknown]
  - Blood pressure decreased [Unknown]
